FAERS Safety Report 4572432-2 (Version None)
Quarter: 2005Q1

REPORT INFORMATION
  Report Type: 
  Country: None (occurrence: None)
  Receive Date: 20050207
  Receipt Date: 20050126
  Transmission Date: 20050727
  Serious: Yes (Death, Life-Threatening)
  Sender: FDA-Public Use
  Company Number: GBS040915668

PATIENT
  Age: 74 Year
  Sex: Female
  Weight: 60 kg

DRUGS (7)
  1. RANITIDINE [Suspect]
     Indication: STRESS ULCER
     Dosage: 50MG TWICE PER DAY
     Route: 042
     Dates: start: 20040922, end: 20040928
  2. DROTRECOGIN ALFA-RECOMBINANT HUMAN ACTIVATED PROTEIN C [Suspect]
     Indication: LISTERIA SEPSIS
     Dosage: 120MG PER DAY
     Route: 042
     Dates: start: 20040922, end: 20040926
  3. CEFUROXIME [Concomitant]
     Indication: SEPSIS
     Dosage: 750MG THREE TIMES PER DAY
     Route: 042
     Dates: start: 20040922, end: 20040926
  4. METRONIDAZOLE [Concomitant]
     Indication: SEPSIS
     Dosage: 500MG THREE TIMES PER DAY
     Route: 042
     Dates: start: 20040922, end: 20040926
  5. AMOXICILLIN [Concomitant]
     Indication: SEPSIS
     Dosage: 2G THREE TIMES PER DAY
     Route: 065
  6. BENZYLPENICILLIN [Concomitant]
     Indication: DRUG USE FOR UNKNOWN INDICATION
     Route: 065
     Dates: start: 20040927
  7. HEPARIN [Concomitant]
     Indication: DRUG USE FOR UNKNOWN INDICATION
     Route: 065

REACTIONS (2)
  - DEATH [None]
  - THROMBOCYTOPENIA [None]
